FAERS Safety Report 18279957 (Version 1)
Quarter: 2020Q3

REPORT INFORMATION
  Report Type: Report from Study
  Country: US (occurrence: US)
  Receive Date: 20200917
  Receipt Date: 20200917
  Transmission Date: 20201103
  Serious: Yes (Hospitalization, Other)
  Sender: FDA-Public Use
  Company Number: US-JNJFOC-A-NJ2019-199563

PATIENT
  Age: 48 Year
  Sex: Female
  Weight: 181.41 kg

DRUGS (7)
  1. LETAIRIS [Concomitant]
     Active Substance: AMBRISENTAN
  2. OXYGEN. [Concomitant]
     Active Substance: OXYGEN
     Dosage: 8 L
  3. UPTRAVI [Suspect]
     Active Substance: SELEXIPAG
     Indication: PULMONARY ARTERIAL HYPERTENSION
     Dosage: 200 MCG, BID
     Route: 048
  4. XARELTO [Concomitant]
     Active Substance: RIVAROXABAN
  5. TADALAFIL. [Suspect]
     Active Substance: TADALAFIL
     Indication: PRODUCT USED FOR UNKNOWN INDICATION
     Dosage: 62.5 UNK
     Route: 048
     Dates: start: 201911, end: 20200102
  6. UPTRAVI [Suspect]
     Active Substance: SELEXIPAG
     Dosage: 600 MCG, BID
     Route: 048
  7. OPSUMIT [Suspect]
     Active Substance: MACITENTAN
     Indication: PULMONARY ARTERIAL HYPERTENSION
     Dosage: 10 MG, QD
     Route: 048
     Dates: start: 20191208, end: 20200108

REACTIONS (14)
  - Anxiety [Unknown]
  - Scab [Unknown]
  - Amenorrhoea [Unknown]
  - Lung disorder [Unknown]
  - Atrial fibrillation [Unknown]
  - Ovarian neoplasm [Unknown]
  - Dyspnoea [Unknown]
  - Erythema [Unknown]
  - Hot flush [Recovered/Resolved]
  - Fluid retention [Recovering/Resolving]
  - Pruritus [Recovering/Resolving]
  - Product dose omission issue [Unknown]
  - Blood pressure decreased [Unknown]
  - Pneumonia [Unknown]

NARRATIVE: CASE EVENT DATE: 2019
